FAERS Safety Report 11540229 (Version 1)
Quarter: 2015Q3

REPORT INFORMATION
  Report Type: Spontaneous
  Country: FR (occurrence: FR)
  Receive Date: 20150923
  Receipt Date: 20150923
  Transmission Date: 20151125
  Serious: Yes (Hospitalization)
  Sender: FDA-Public Use
  Company Number: FR-GUERBET LLC-1042216

PATIENT
  Age: 51 Year
  Sex: Female

DRUGS (8)
  1. FORLAX(MACROGOL 4000) [Concomitant]
  2. PARIET(RABEPRAZOLE) [Concomitant]
  3. PROFENID(KETOPROFENE) [Concomitant]
  4. DOTAREM [Suspect]
     Active Substance: GADOTERATE MEGLUMINE
     Indication: NUCLEAR MAGNETIC RESONANCE IMAGING
     Route: 042
     Dates: start: 20130520, end: 20130520
  5. VENTOLINE(SALBUTAMOL) [Concomitant]
  6. IMOVANE(ZOPICLONE) [Concomitant]
  7. SYMBICORT [Concomitant]
     Active Substance: BUDESONIDE\FORMOTEROL FUMARATE DIHYDRATE
  8. DUROGESIC(FENTANYL) [Concomitant]

REACTIONS (4)
  - Rash [Recovered/Resolved]
  - Pruritus [Recovered/Resolved]
  - Chest pain [Recovered/Resolved]
  - Dyspnoea [Recovered/Resolved]

NARRATIVE: CASE EVENT DATE: 20130520
